FAERS Safety Report 8345288-X (Version None)
Quarter: 2012Q2

REPORT INFORMATION
  Report Type: 
  Country: None (occurrence: None)
  Receive Date: 20120508
  Receipt Date: 20120501
  Transmission Date: 20120825
  Serious: Yes (Life-Threatening, Other)
  Sender: FDA-Public Use
  Company Number: TR-ROXANE LABORATORIES, INC.-2012-RO-01163RO

PATIENT
  Age: 61 Year
  Sex: Female

DRUGS (3)
  1. CARVEDILOL [Suspect]
     Route: 048
  2. FUROSEMIDE [Suspect]
     Route: 048
  3. LISINOPRIL [Suspect]
     Route: 048

REACTIONS (6)
  - CARDIAC ARREST [None]
  - ANAEMIA [None]
  - GASTROENTERITIS [None]
  - VENTRICULAR FIBRILLATION [None]
  - HYPOKALAEMIA [None]
  - NERVOUS SYSTEM DISORDER [None]
